FAERS Safety Report 5765054-9 (Version None)
Quarter: 2008Q2

REPORT INFORMATION
  Report Type: 
  Country: None (occurrence: None)
  Receive Date: 20080606
  Receipt Date: 20080606
  Transmission Date: 20081010
  Serious: Yes (Life-Threatening)
  Sender: FDA-Public Use
  Company Number: None

PATIENT
  Age: 75 Year
  Sex: Female
  Weight: 74.8435 kg

DRUGS (4)
  1. DIGITEK 0.125 MG. BERTEK [Suspect]
     Indication: ATRIAL FIBRILLATION
     Dates: start: 20080417
  2. DIGITEK 0.125 MG. BERTEK [Suspect]
     Indication: ATRIAL FIBRILLATION
     Dates: start: 20080418
  3. DIGITEK 0.125 MG. BERTEK [Suspect]
     Indication: ATRIAL FIBRILLATION
     Dates: start: 20080419
  4. DIGITEK 0.125 MG. BERTEK [Suspect]
     Indication: ATRIAL FIBRILLATION
     Dates: start: 20080420

REACTIONS (2)
  - CONFUSIONAL STATE [None]
  - SOMNOLENCE [None]
